FAERS Safety Report 8461666-2 (Version None)
Quarter: 2012Q2

REPORT INFORMATION
  Report Type: 
  Country: None (occurrence: None)
  Receive Date: 20120625
  Receipt Date: 20120618
  Transmission Date: 20120825
  Serious: Yes (Hospitalization)
  Sender: FDA-Public Use
  Company Number: US-JNJFOC-20120609146

PATIENT
  Sex: Male
  Weight: 58.06 kg

DRUGS (3)
  1. TOPICAL CORTICOSTEROIDS [Concomitant]
     Route: 061
  2. USTEKINUMAB [Suspect]
     Indication: PSORIASIS
     Route: 058
     Dates: start: 20100901
  3. TACLONEX [Concomitant]

REACTIONS (1)
  - TOOTH ABSCESS [None]
